FAERS Safety Report 13499758 (Version 2)
Quarter: 2017Q2

REPORT INFORMATION
  Report Type: Report from Study
  Country: US (occurrence: US)
  Receive Date: 20170501
  Receipt Date: 20170516
  Transmission Date: 20170830
  Serious: Yes (Death, Other)
  Sender: FDA-Public Use
  Company Number: US-GILEAD-2017-0269957

PATIENT
  Age: 58 Year
  Sex: Male
  Weight: 73.47 kg

DRUGS (9)
  1. TYVASO [Concomitant]
     Active Substance: TREPROSTINIL
  2. LASIX [Concomitant]
     Active Substance: FUROSEMIDE
  3. CAPTOPRIL. [Concomitant]
     Active Substance: CAPTOPRIL
  4. AMBRISENTAN [Suspect]
     Active Substance: AMBRISENTAN
     Indication: SCLERODERMA
  5. PRILOSEC [Concomitant]
     Active Substance: OMEPRAZOLE MAGNESIUM
  6. AMBRISENTAN [Suspect]
     Active Substance: AMBRISENTAN
     Indication: PULMONARY ARTERIAL HYPERTENSION
     Dosage: 10 MG, QD
     Route: 048
     Dates: start: 20141124
  7. LIPITOR [Concomitant]
     Active Substance: ATORVASTATIN CALCIUM
  8. ATENOLOL. [Concomitant]
     Active Substance: ATENOLOL
  9. CELEXA [Concomitant]
     Active Substance: CITALOPRAM HYDROBROMIDE

REACTIONS (3)
  - Respiratory distress [Unknown]
  - Cardio-respiratory arrest [Fatal]
  - Hypoxia [Fatal]

NARRATIVE: CASE EVENT DATE: 20170411
